FAERS Safety Report 15261431 (Version 1)
Quarter: 2018Q3

REPORT INFORMATION
  Report Type: Spontaneous
  Country: US (occurrence: US)
  Receive Date: 20180719
  Receipt Date: 20180719
  Transmission Date: 20181010
  Serious: Yes (Other)
  Sender: FDA-Public Use
  Company Number: None

PATIENT
  Age: 62 Year
  Sex: Female
  Weight: 108.86 kg

DRUGS (5)
  1. TEFLARO [Suspect]
     Active Substance: CEFTAROLINE FOSAMIL
     Indication: INFECTION
     Route: 042
     Dates: start: 20180615, end: 20180719
  2. ECLIPSE 200 MG/HR 100 ML BALL [Concomitant]
  3. TEFLARO [Suspect]
     Active Substance: CEFTAROLINE FOSAMIL
     Indication: INFLAMMATION
     Route: 042
     Dates: start: 20180615, end: 20180719
  4. NORMAL SALINE, 0.9% % [Suspect]
     Active Substance: SODIUM CHLORIDE
     Indication: INFLAMMATION
     Route: 042
  5. NORMAL SALINE, 0.9% % [Suspect]
     Active Substance: SODIUM CHLORIDE
     Indication: INFECTION
     Route: 042

REACTIONS (6)
  - Vomiting [None]
  - Reaction to excipient [None]
  - Headache [None]
  - Nausea [None]
  - Intraocular pressure increased [None]
  - Drug intolerance [None]

NARRATIVE: CASE EVENT DATE: 20180718
